FAERS Safety Report 8257556-0 (Version None)
Quarter: 2012Q2

REPORT INFORMATION
  Report Type: 
  Country: None (occurrence: None)
  Receive Date: 20120403
  Receipt Date: 20120319
  Transmission Date: 20120825
  Serious: Yes (Other)
  Sender: FDA-Public Use
  Company Number: FR-FRI-1000029564

PATIENT
  Sex: Male

DRUGS (2)
  1. MILNACIPRAN [Suspect]
     Route: 048
  2. MILNACIPRAN [Suspect]
     Route: 048

REACTIONS (2)
  - BIFASCICULAR BLOCK [None]
  - MALAISE [None]
